FAERS Safety Report 5894902-7 (Version None)
Quarter: 2008Q3

REPORT INFORMATION
  Report Type: 
  Country: None (occurrence: None)
  Receive Date: 20080924
  Receipt Date: 20080915
  Transmission Date: 20090109
  Serious: Yes (Other)
  Sender: FDA-Public Use
  Company Number: PHHY2008FR16706

PATIENT
  Age: 52 Year
  Sex: Male
  Weight: 62 kg

DRUGS (9)
  1. LEPONEX [Suspect]
     Indication: DEMENTIA
     Dosage: UNK
     Route: 065
     Dates: start: 20071003, end: 20080225
  2. LEPONEX [Suspect]
     Indication: ABNORMAL BEHAVIOUR
  3. TEGRETOL 200 LC [Suspect]
     Dosage: 1000 MG/DAY
     Dates: start: 19890101
  4. EQUANIL [Concomitant]
  5. OMEPRAZOLE [Concomitant]
     Indication: GASTROOESOPHAGEAL REFLUX DISEASE
     Dosage: 20 MG/DAY
     Route: 048
  6. PREVISCAN [Concomitant]
     Indication: THROMBOSIS PROPHYLAXIS
  7. PHENOBARBITAL TAB [Concomitant]
     Indication: EPILEPSY
     Dosage: 130 MG/DAY
     Route: 048
     Dates: start: 19890101
  8. DEPAKENE [Concomitant]
     Indication: EPILEPSY
     Dosage: 1500 MG/DAY
     Route: 048
  9. TENORMIN [Concomitant]
     Dosage: 50 MG DAY

REACTIONS (1)
  - PANCYTOPENIA [None]
